FAERS Safety Report 20186876 (Version 1)
Quarter: 2021Q4

REPORT INFORMATION
  Report Type: Report from Study
  Country: US (occurrence: US)
  Receive Date: 20211215
  Receipt Date: 20211215
  Transmission Date: 20220303
  Serious: Yes (Other)
  Sender: FDA-Public Use
  Company Number: US-BRISTOL-MYERS SQUIBB COMPANY-BMS-2021-106528

PATIENT
  Age: 80 Year
  Sex: Male
  Weight: 109.3 kg

DRUGS (2)
  1. APIXABAN [Suspect]
     Active Substance: APIXABAN
     Indication: Cerebrovascular accident prophylaxis
     Dosage: 2.5 MILLIGRAM, BID
     Route: 048
  2. TIKOSYN [Suspect]
     Active Substance: DOFETILIDE
     Indication: Product used for unknown indication
     Dosage: 250 MICROGRAM, BID 1 CAP BY MOUTH EVERY 12 HOURS
     Route: 048

REACTIONS (3)
  - Atrial fibrillation [Unknown]
  - Bradycardia [Unknown]
  - Dyspnoea [Unknown]
